FAERS Safety Report 8049943-0 (Version None)
Quarter: 2011Q4

REPORT INFORMATION
  Report Type: 
  Country: None (occurrence: None)
  Receive Date: 20111212
  Receipt Date: 20110831
  Transmission Date: 20120403
  Serious: Yes (Other)
  Sender: FDA-Public Use
  Company Number: PHEH2011US03328

PATIENT
  Age: 39 Year
  Sex: Female

DRUGS (1)
  1. EXTAVIA [Suspect]
     Indication: MULTIPLE SCLEROSIS
     Dosage: 0.25 MG, QOD, SUBCUTANEOUS
     Route: 058

REACTIONS (6)
  - DEPRESSION [None]
  - CRYING [None]
  - HEPATIC ENZYME INCREASED [None]
  - NAUSEA [None]
  - ANXIETY [None]
  - PANIC DISORDER [None]
